FAERS Safety Report 20088698 (Version 1)
Quarter: 2021Q4

REPORT INFORMATION
  Report Type: Spontaneous
  Country: HR (occurrence: HR)
  Receive Date: 20211119
  Receipt Date: 20211119
  Transmission Date: 20220303
  Serious: Yes (Hospitalization, Other)
  Sender: FDA-Public Use
  Company Number: HR-MLMSERVICE-20211104-3209454-1

PATIENT
  Age: 3 Year
  Sex: Female

DRUGS (2)
  1. METHOTREXATE [Suspect]
     Active Substance: METHOTREXATE
     Indication: Acute lymphocytic leukaemia
  2. MERCAPTOPURINE [Suspect]
     Active Substance: MERCAPTOPURINE
     Indication: Acute lymphocytic leukaemia

REACTIONS (4)
  - Renal impairment [Recovered/Resolved]
  - Blood bilirubin increased [Unknown]
  - Thrombotic microangiopathy [Recovering/Resolving]
  - Hypertension [Unknown]
